FAERS Safety Report 9629807 (Version 1)
Quarter: 2013Q4

REPORT INFORMATION
  Report Type: Report from Study
  Country: US (occurrence: US)
  Receive Date: 20131017
  Receipt Date: 20131017
  Transmission Date: 20140711
  Serious: Yes (Other)
  Sender: FDA-Public Use
  Company Number: US-ABBVIE-13P-163-1155579-00

PATIENT
  Age: 54 Year
  Sex: Female

DRUGS (7)
  1. HUMIRA [Suspect]
     Indication: RHEUMATOID ARTHRITIS
     Route: 058
     Dates: start: 200910
  2. HUMIRA [Suspect]
     Dates: start: 2011
  3. HUMIRA [Suspect]
  4. OXYCONTIN [Concomitant]
     Indication: PAIN
     Dosage: EVERY 6 HOURS
  5. METHOTREXATE [Concomitant]
     Indication: PRODUCT USED FOR UNKNOWN INDICATION
  6. ATENOLOL [Concomitant]
     Indication: HYPERTENSION
  7. NAPROXEN [Concomitant]
     Indication: PAIN

REACTIONS (24)
  - Paralysis [Recovered/Resolved]
  - Foot deformity [Recovered/Resolved]
  - Hypoaesthesia [Recovered/Resolved]
  - Paraesthesia [Recovered/Resolved]
  - Paralysis [Recovered/Resolved]
  - Spinal disorder [Recovered/Resolved]
  - Pain in extremity [Recovered/Resolved]
  - Paraesthesia [Recovered/Resolved]
  - Hypoaesthesia [Recovered/Resolved]
  - Paralysis [Recovered/Resolved]
  - Spinal disorder [Recovered/Resolved]
  - Pain [Not Recovered/Not Resolved]
  - Hypoaesthesia [Not Recovered/Not Resolved]
  - Paralysis [Not Recovered/Not Resolved]
  - Tendon injury [Not Recovered/Not Resolved]
  - Neuropathy peripheral [Not Recovered/Not Resolved]
  - Cough [Not Recovered/Not Resolved]
  - Sinusitis [Recovered/Resolved]
  - Ear pain [Recovered/Resolved]
  - Nasal ulcer [Recovered/Resolved]
  - Paranasal sinus hypersecretion [Recovered/Resolved]
  - Cough [Recovered/Resolved]
  - Muscle spasms [Not Recovered/Not Resolved]
  - Rhinorrhoea [Unknown]
